FAERS Safety Report 8243978-0 (Version None)
Quarter: 2012Q1

REPORT INFORMATION
  Report Type: 
  Country: None (occurrence: None)
  Receive Date: 20120329
  Receipt Date: 20120123
  Transmission Date: 20120608
  Serious: No
  Sender: FDA-Public Use
  Company Number: US-MYLANLABS-2011S1025017

PATIENT
  Age: 58 Year
  Sex: Female
  Weight: 52.16 kg

DRUGS (8)
  1. ESTRADIOL [Suspect]
     Indication: OSTEOPOROSIS
     Dosage: CHANGED QW
     Route: 062
  2. FLUOXETINE [Concomitant]
  3. MAGNESIUM [Concomitant]
  4. PRILOSEC [Concomitant]
  5. CALCIUM CARBONATE [Concomitant]
  6. NAPROXEN (ALEVE) [Concomitant]
  7. ESTRADIOL [Suspect]
     Indication: HORMONE REPLACEMENT THERAPY
     Dosage: CHANGED QW
     Route: 062
  8. IMITREX [Concomitant]

REACTIONS (2)
  - APPLICATION SITE ERYTHEMA [None]
  - APPLICATION SITE RASH [None]
